FAERS Safety Report 9227754 (Version 1)
Quarter: 2013Q1

REPORT INFORMATION
  Report Type: Spontaneous
  Country: US (occurrence: None)
  Receive Date: 20121031
  Receipt Date: 20121031
  Transmission Date: 20140127
  Serious: No
  Sender: FDA-Public Use
  Company Number: PHEH2012US015570

PATIENT
  Age: 58 Year
  Sex: Female
  Weight: 39.9 kg

DRUGS (1)
  1. GILENYA (FTY)CAPSULE, 0.5MG [Suspect]
     Indication: MULTIPLE SCLEROSIS
     Route: 048
     Dates: start: 20120807

REACTIONS (12)
  - Tachycardia [None]
  - Fatigue [None]
  - Nausea [None]
  - Myalgia [None]
  - Influenza like illness [None]
  - Weight decreased [None]
  - Dyspnoea [None]
  - Vision blurred [None]
  - Condition aggravated [None]
  - Headache [None]
  - Dizziness [None]
  - Decreased appetite [None]
